FAERS Safety Report 8973916 (Version 2)
Quarter: 2013Q2

REPORT INFORMATION
  Report Type: Spontaneous
  Country: SE (occurrence: SE)
  Receive Date: 20121218
  Receipt Date: 20130603
  Transmission Date: 20140414
  Serious: Yes (Other)
  Sender: FDA-Public Use
  Company Number: PHHY2012SE116603

PATIENT
  Sex: Female

DRUGS (1)
  1. METOPROLOL GEA [Suspect]
     Route: 048

REACTIONS (1)
  - Guttate psoriasis [Unknown]
